FAERS Safety Report 8085484-2 (Version None)
Quarter: 2012Q1

REPORT INFORMATION
  Report Type: 
  Country: None (occurrence: None)
  Receive Date: 20120128
  Receipt Date: 20110512
  Transmission Date: 20120608
  Serious: No
  Sender: FDA-Public Use
  Company Number: US-ABBOTT-11P-163-0709963-00

PATIENT
  Sex: Male
  Weight: 83.99 kg

DRUGS (4)
  1. ACETAMINOPHEN [Concomitant]
     Indication: RHEUMATOID ARTHRITIS
  2. HUMIRA [Suspect]
     Indication: RHEUMATOID ARTHRITIS
     Dates: start: 20040101
  3. EFFEXOR [Concomitant]
     Indication: ANXIETY
  4. INDOCIN [Concomitant]
     Indication: RHEUMATOID ARTHRITIS

REACTIONS (2)
  - DEVICE MALFUNCTION [None]
  - INJECTION SITE HAEMORRHAGE [None]
